FAERS Safety Report 10796857 (Version 1)
Quarter: 2015Q1

REPORT INFORMATION
  Report Type: Report from Study
  Country: US (occurrence: US)
  Receive Date: 20150216
  Receipt Date: 20150216
  Transmission Date: 20150721
  Serious: No
  Sender: FDA-Public Use
  Company Number: US-ABBVIE-12P-163-0977824-00

PATIENT
  Sex: Female
  Weight: 83.99 kg

DRUGS (12)
  1. IMURAN [Concomitant]
     Active Substance: AZATHIOPRINE
     Indication: RHEUMATOID ARTHRITIS
     Route: 048
     Dates: start: 20111119, end: 20120811
  2. PRENATAL VITAMINS [Concomitant]
     Active Substance: VITAMINS
     Indication: PRODUCT USED FOR UNKNOWN INDICATION
     Dosage: 1 PILL ONCE A DAY
     Route: 048
     Dates: start: 20111119, end: 20120814
  3. IRON [Concomitant]
     Active Substance: IRON
     Indication: ANAEMIA
     Dosage: 1 PILL ONCE A DAY
     Route: 048
     Dates: start: 20110119, end: 20120814
  4. VITAMIN D [Concomitant]
     Active Substance: CHOLECALCIFEROL
     Route: 048
     Dates: start: 20120605, end: 20120814
  5. TYLENOL [Concomitant]
     Active Substance: ACETAMINOPHEN
     Indication: NASOPHARYNGITIS
     Dosage: 2 PILLS TWICE A DAY
     Route: 048
     Dates: start: 20120112, end: 20120113
  6. FOLIC ACID. [Concomitant]
     Active Substance: FOLIC ACID
     Indication: PRODUCT USED FOR UNKNOWN INDICATION
     Route: 048
     Dates: start: 20111119, end: 20120801
  7. PRILOSEC [Concomitant]
     Active Substance: OMEPRAZOLE MAGNESIUM
     Indication: DYSPEPSIA
     Dosage: 1 PILL ONCE PER DAY
     Route: 048
     Dates: start: 20120804, end: 20120810
  8. CELEBREX [Concomitant]
     Active Substance: CELECOXIB
     Indication: RHEUMATOID ARTHRITIS
     Route: 048
     Dates: start: 20111119, end: 20111214
  9. HUMIRA [Suspect]
     Active Substance: ADALIMUMAB
     Indication: RHEUMATOID ARTHRITIS
     Route: 058
     Dates: start: 20111119, end: 20120808
  10. VITAMIN D [Concomitant]
     Active Substance: CHOLECALCIFEROL
     Indication: PRODUCT USED FOR UNKNOWN INDICATION
     Route: 048
     Dates: start: 20111119, end: 20120430
  11. TYLENOL [Concomitant]
     Active Substance: ACETAMINOPHEN
     Indication: SINUS DISORDER
  12. TUMS [Concomitant]
     Active Substance: CALCIUM CARBONATE
     Indication: PRODUCT USED FOR UNKNOWN INDICATION
     Dosage: 2 PILLS 2 PER WEEK
     Route: 048
     Dates: start: 20111224, end: 20120201

REACTIONS (5)
  - Sinus disorder [Unknown]
  - Dyspepsia [Unknown]
  - Nasopharyngitis [Unknown]
  - Rheumatoid arthritis [Unknown]
  - Anaemia [Unknown]
